FAERS Safety Report 6695300-9 (Version None)
Quarter: 2010Q2

REPORT INFORMATION
  Report Type: 
  Country: None (occurrence: None)
  Receive Date: 20100423
  Receipt Date: 20100419
  Transmission Date: 20101027
  Serious: Yes (Death)
  Sender: FDA-Public Use
  Company Number: US-GILEAD-2010-0028628

PATIENT
  Sex: Female
  Weight: 47.67 kg

DRUGS (12)
  1. LETAIRIS [Suspect]
     Indication: PULMONARY ARTERIAL HYPERTENSION
     Route: 048
     Dates: start: 20100331
  2. VIAGRA [Concomitant]
  3. LOVENOX [Concomitant]
  4. OXYGEN [Concomitant]
  5. COLACE [Concomitant]
  6. MORPHINE [Concomitant]
  7. LOVAZA [Concomitant]
  8. MULTIVITAMIN [Concomitant]
  9. ZETIA [Concomitant]
  10. SENNA [Concomitant]
  11. PHOSCAL D [Concomitant]
  12. PROTONIX [Concomitant]

REACTIONS (1)
  - DEATH [None]
